FAERS Safety Report 14039541 (Version 1)
Quarter: 2017Q4

REPORT INFORMATION
  Report Type: Report from Study
  Country: US (occurrence: BR)
  Receive Date: 20171004
  Receipt Date: 20171004
  Transmission Date: 20180321
  Serious: Yes (Other)
  Sender: FDA-Public Use
  Company Number: US-SUNOVION-2017SUN004285

PATIENT
  Sex: Male
  Weight: 95 kg

DRUGS (3)
  1. GLYCOPYRROLATE. [Suspect]
     Active Substance: GLYCOPYRROLATE
     Indication: ASTHMA
     Dosage: UNKNOWN
     Route: 065
  2. INDACATEROL AND GLYCOPYRROLATE [Suspect]
     Active Substance: GLYCOPYRROLATE\INDACATEROL MALEATE
     Indication: ASTHMA
     Dosage: UNKNOWN
     Route: 055
  3. FLUMAZOL [Concomitant]
     Dosage: 400 MG, UNK

REACTIONS (3)
  - Asthmatic crisis [Recovering/Resolving]
  - Arrhythmia [Recovering/Resolving]
  - Product use in unapproved indication [Unknown]
